FAERS Safety Report 22002208 (Version 1)
Quarter: 2023Q1

REPORT INFORMATION
  Report Type: Spontaneous
  Country: EG (occurrence: EG)
  Receive Date: 20230217
  Receipt Date: 20230217
  Transmission Date: 20230418
  Serious: No
  Sender: FDA-Public Use
  Company Number: EG-ALKEM LABORATORIES LIMITED-EG-ALKEM-2022-09682

PATIENT

DRUGS (2)
  1. TRIAMCINOLONE ACETONIDE [Suspect]
     Active Substance: TRIAMCINOLONE ACETONIDE
     Indication: Extraocular muscle disorder
     Dosage: 0.1 MILLILITER, INJECTION (6 TIMES IN THE AFFECTED MUSCLE WITH ONE WEEK INTERVAL BETWEEN EACH INJECT
     Route: 065
  2. FLUOROURACIL [Suspect]
     Active Substance: FLUOROURACIL
     Indication: Extraocular muscle disorder
     Dosage: 0.9 MILLILITER (6 TIMES IN THE AFFECTED MUSCLE WITH ONE WEEK INTERVAL BETWEEN EACH INJECTION AND THE
     Route: 065

REACTIONS (1)
  - Ocular discomfort [Unknown]
